FAERS Safety Report 25562886 (Version 1)
Quarter: 2025Q3

REPORT INFORMATION
  Report Type: Report from Study
  Country: CA (occurrence: CA)
  Receive Date: 20250716
  Receipt Date: 20250716
  Transmission Date: 20251021
  Serious: Yes (Hospitalization)
  Sender: ALEXION PHARMACEUTICALS
  Company Number: CA-AstraZeneca-CH-00909046A

PATIENT
  Age: 81 Year
  Sex: Male

DRUGS (1)
  1. ACALABRUTINIB [Suspect]
     Active Substance: ACALABRUTINIB
     Indication: Chronic lymphocytic leukaemia
     Dosage: 100 MILLIGRAM, QD
     Dates: start: 20200318

REACTIONS (3)
  - Fall [Unknown]
  - Traumatic intracranial haemorrhage [Unknown]
  - Traumatic fracture [Unknown]

NARRATIVE: CASE EVENT DATE: 20250526
